FAERS Safety Report 20825421 (Version 1)
Quarter: 2022Q2

REPORT INFORMATION
  Report Type: Report from Study
  Country: US (occurrence: US)
  Receive Date: 20220513
  Receipt Date: 20220513
  Transmission Date: 20220721
  Serious: Yes (Hospitalization, Other)
  Sender: FDA-Public Use
  Company Number: US-ABBVIE-22K-163-4391138-00

PATIENT
  Sex: Male
  Weight: 56.750 kg

DRUGS (11)
  1. DEPAKOTE [Suspect]
     Active Substance: DIVALPROEX SODIUM
     Indication: Epilepsy
     Route: 048
     Dates: start: 1995, end: 2015
  2. DEPAKOTE [Suspect]
     Active Substance: DIVALPROEX SODIUM
     Route: 048
     Dates: start: 2015
  3. DIVALPROEX SODIUM [Suspect]
     Active Substance: DIVALPROEX SODIUM
     Indication: Epilepsy
     Dosage: DR
     Route: 048
     Dates: start: 2015
  4. DANTROLENE [Concomitant]
     Active Substance: DANTROLENE
     Indication: Muscle contracture
  5. MIRTAZAPINE [Concomitant]
     Active Substance: MIRTAZAPINE
     Indication: Prophylaxis
  6. CITALOPRAM [Concomitant]
     Active Substance: CITALOPRAM HYDROBROMIDE
     Indication: Prophylaxis
  7. OMEGA-3 ACIDS [Concomitant]
     Active Substance: OMEGA-3 FATTY ACIDS
     Indication: Nutritional supplementation
  8. BISACODYL [Concomitant]
     Active Substance: BISACODYL
     Indication: Bowel movement irregularity
     Dosage: SUPPOSITORY
  9. PFIZER-BIONTECH COVID-19 VACCINE [Concomitant]
     Active Substance: TOZINAMERAN
     Indication: COVID-19 immunisation
     Dosage: PFIZER DOSE 1 OF 3
     Route: 030
     Dates: start: 20210330, end: 20210330
  10. PFIZER-BIONTECH COVID-19 VACCINE [Concomitant]
     Active Substance: TOZINAMERAN
     Dosage: PFIZER DOSE 2 OF 3
     Route: 030
     Dates: start: 20210420, end: 20210420
  11. PFIZER-BIONTECH COVID-19 VACCINE [Concomitant]
     Active Substance: TOZINAMERAN
     Dosage: PFIZER DOSE 3 OF 3
     Route: 030
     Dates: start: 20220110, end: 20220110

REACTIONS (4)
  - Seizure [Recovered/Resolved]
  - Fall [Not Recovered/Not Resolved]
  - Hip fracture [Unknown]
  - Implant site abscess [Recovered/Resolved]

NARRATIVE: CASE EVENT DATE: 20150101
